FAERS Safety Report 6639687-1 (Version None)
Quarter: 2010Q1

REPORT INFORMATION
  Report Type: 
  Country: None (occurrence: None)
  Receive Date: 20100318
  Receipt Date: 20100312
  Transmission Date: 20100710
  Serious: Yes (Other)
  Sender: FDA-Public Use
  Company Number: US-CEPHALON-2010001470

PATIENT
  Sex: Male

DRUGS (2)
  1. PROVIGIL [Suspect]
     Indication: NARCOLEPSY
     Route: 048
  2. PROVIGIL [Suspect]
     Indication: EPILEPSY
     Route: 048

REACTIONS (2)
  - DRUG TOLERANCE [None]
  - INTRACRANIAL ANEURYSM [None]
